FAERS Safety Report 6219333-1 (Version None)
Quarter: 2009Q2

REPORT INFORMATION
  Report Type: 
  Country: None (occurrence: None)
  Receive Date: 20090609
  Receipt Date: 20090528
  Transmission Date: 20091009
  Serious: Yes (Hospitalization)
  Sender: FDA-Public Use
  Company Number: JP-PFIZER INC-2009221885

PATIENT
  Age: 65 Year

DRUGS (3)
  1. SUNITINIB MALATE [Suspect]
     Indication: GASTROINTESTINAL STROMAL TUMOUR
     Dosage: 50 MG, 1X/DAY
     Route: 048
     Dates: start: 20080814
  2. RHYTHMY [Concomitant]
     Dosage: UNK
     Route: 048
     Dates: start: 20070328
  3. AZUNOL #1 [Concomitant]
     Dosage: UNK
     Dates: start: 20080827

REACTIONS (1)
  - ANEURYSM [None]
